FAERS Safety Report 5835980-0 (Version None)
Quarter: 2008Q3

REPORT INFORMATION
  Report Type: 
  Country: None (occurrence: None)
  Receive Date: 20080806
  Receipt Date: 20080619
  Transmission Date: 20090109
  Serious: Yes (Other)
  Sender: FDA-Public Use
  Company Number: US-PFIZER INC-2008048696

PATIENT
  Sex: Male

DRUGS (5)
  1. DILANTIN [Suspect]
     Indication: CONVULSION
  2. LORTAB [Concomitant]
  3. AMOXICILLIN [Concomitant]
  4. XANAX [Concomitant]
  5. DEPAKOTE [Concomitant]

REACTIONS (1)
  - CONVULSION [None]
